FAERS Safety Report 11200506 (Version 4)
Quarter: 2015Q3

REPORT INFORMATION
  Report Type: Spontaneous
  Country: US (occurrence: US)
  Receive Date: 20150618
  Receipt Date: 20150804
  Transmission Date: 20151125
  Serious: Yes (Hospitalization, Other)
  Sender: FDA-Public Use
  Company Number: PHHY2015US065996

PATIENT
  Age: 29 Year
  Sex: Male

DRUGS (16)
  1. ZYPREXA [Suspect]
     Active Substance: OLANZAPINE
     Indication: PRODUCT USED FOR UNKNOWN INDICATION
     Dosage: 1 DF, QD (AT BEDTIME) (BY GASTRIC TUBE )
     Route: 065
  2. EFFEXOR [Suspect]
     Active Substance: VENLAFAXINE HYDROCHLORIDE
     Indication: PRODUCT USED FOR UNKNOWN INDICATION
     Dosage: 2 DF, QD (25 MG A.M AND 25 MG P.M)
     Route: 065
  3. NYSTATIN. [Suspect]
     Active Substance: NYSTATIN
     Indication: PRODUCT USED FOR UNKNOWN INDICATION
     Dosage: 100000 UNIT/GM (2 TIMES DAILY AS NEEDED)
     Route: 061
  4. FLEET [Suspect]
     Active Substance: BISACODYL\GLYCERIN\MINERAL OIL\SODIUM PHOSPHATE, DIBASIC\SODIUM PHOSPHATE, MONOBASIC
     Indication: PRODUCT USED FOR UNKNOWN INDICATION
     Dosage: 1 ENEMA RECTALLY EVERY 48 HOURS AS NEEDED
     Route: 054
  5. TYLENOL [Suspect]
     Active Substance: ACETAMINOPHEN
     Indication: PAIN
     Dosage: (2 DF BY GASTRIC TUBE EVERY 4 HOURS AS NEEDED)
     Route: 065
     Dates: start: 20150425
  6. BENADRYL [Suspect]
     Active Substance: DIPHENHYDRAMINE HYDROCHLORIDE
     Indication: HYPERSENSITIVITY
     Dosage: 25 MG, BID (BY GASTRIC TUBE ROUTE )
     Route: 065
  7. DUONEB [Suspect]
     Active Substance: ALBUTEROL SULFATE\IPRATROPIUM BROMIDE
     Indication: PRODUCT USED FOR UNKNOWN INDICATION
     Dosage: 3 ML BY NEBULIZER EVERY 4 HOURS AS NEEDED
     Route: 065
  8. BACTROBAN [Suspect]
     Active Substance: MUPIROCIN\MUPIROCIN CALCIUM
     Indication: ERYTHEMA
     Dosage: (TOPICALLY 3 TIMES DAILY AS NEEDED)
     Route: 061
  9. OXYCODONE [Suspect]
     Active Substance: OXYCODONE
     Indication: PRODUCT USED FOR UNKNOWN INDICATION
     Dosage: 7.5 ML, EVERY 5 HOURS AS NEEDED BY GASTRIC TUBE
     Route: 065
     Dates: start: 20150425
  10. LIORESAL [Suspect]
     Active Substance: BACLOFEN
     Indication: PRODUCT USED FOR UNKNOWN INDICATION
     Dosage: 1 DF, QD BY GASTRIC TUBE
     Route: 065
     Dates: start: 20150425
  11. LIORESAL [Suspect]
     Active Substance: BACLOFEN
     Indication: MUSCLE SPASTICITY
     Dosage: 345 UG, QD
     Route: 037
     Dates: start: 20150424
  12. VALIUM [Suspect]
     Active Substance: DIAZEPAM
     Indication: PRODUCT USED FOR UNKNOWN INDICATION
     Dosage: 7.5 MG, TID (BY GASTRIC TUBE ROUTE )
     Route: 065
  13. MIRALAX [Suspect]
     Active Substance: POLYETHYLENE GLYCOL 3350
     Indication: PRODUCT USED FOR UNKNOWN INDICATION
     Dosage: 8.5 G, QOD
     Route: 065
  14. MESTINON [Suspect]
     Active Substance: PYRIDOSTIGMINE BROMIDE
     Indication: PRODUCT USED FOR UNKNOWN INDICATION
     Dosage: 60 MG, TID (BY GASTRIC TUBE )
     Route: 065
  15. ZANTAC [Suspect]
     Active Substance: RANITIDINE HYDROCHLORIDE
     Indication: PRODUCT USED FOR UNKNOWN INDICATION
     Dosage: 150 MG, BID  (BY GASTRIC TUBE )
     Route: 065
  16. TEGRETOL [Suspect]
     Active Substance: CARBAMAZEPINE
     Indication: PRODUCT USED FOR UNKNOWN INDICATION
     Dosage: 300 MG, BID DAILY (BY GASTRIC TUBE ROUTE )
     Route: 065

REACTIONS (12)
  - Medical device site irritation [Unknown]
  - Pyrexia [Recovered/Resolved]
  - Constipation [Recovered/Resolved]
  - Cerebrospinal fluid leakage [Unknown]
  - Incision site erythema [Recovered/Resolved]
  - Incision site haemorrhage [Unknown]
  - Pneumonia [Unknown]
  - Medical device site extravasation [Unknown]
  - Medical device site cellulitis [Unknown]
  - Urinary tract infection [Recovered/Resolved]
  - Incision site swelling [Unknown]
  - Medical device site infection [Not Recovered/Not Resolved]

NARRATIVE: CASE EVENT DATE: 201505
